FAERS Safety Report 6856236-3 (Version None)
Quarter: 2010Q3

REPORT INFORMATION
  Report Type: 
  Country: None (occurrence: None)
  Receive Date: 20100719
  Receipt Date: 20100708
  Transmission Date: 20110219
  Serious: Yes (Life-Threatening, Hospitalization, Other)
  Sender: FDA-Public Use
  Company Number: US-BAXTER-2010BH014656

PATIENT
  Sex: Female
  Weight: 10 kg

DRUGS (2)
  1. DIANEAL [Suspect]
     Indication: PERITONEAL DIALYSIS
     Route: 033
     Dates: start: 20091119
  2. DIANEAL [Suspect]
     Route: 033
     Dates: start: 20091119

REACTIONS (5)
  - ABDOMINAL DISTENSION [None]
  - FLUID OVERLOAD [None]
  - HERNIA [None]
  - PERITONEAL DISORDER [None]
  - ULTRAFILTRATION FAILURE [None]
